FAERS Safety Report 9384824 (Version 1)
Quarter: 2013Q3

REPORT INFORMATION
  Report Type: Spontaneous
  Country: FR (occurrence: None)
  Receive Date: 20130701
  Receipt Date: 20130701
  Transmission Date: 20140515
  Serious: Yes (Hospitalization, Other)
  Sender: FDA-Public Use
  Company Number: MC201300338

PATIENT
  Age: 79 Year
  Sex: Female

DRUGS (17)
  1. ANGIOMAX [Suspect]
     Route: 042
     Dates: start: 20130526, end: 20130527
  2. REOPRO [Suspect]
     Route: 042
     Dates: start: 20130526, end: 20130527
  3. HEPARIN [Suspect]
     Dosage: UFH, INTRAVENOUS
     Route: 042
     Dates: start: 20130530, end: 20130531
  4. CEFTRIAXONE [Suspect]
     Route: 042
     Dates: start: 20130528, end: 20130530
  5. INIPOMP [Suspect]
     Route: 048
     Dates: start: 20130526, end: 20130530
  6. PLAVIX [Suspect]
     Route: 048
     Dates: start: 20130526, end: 20130530
  7. CRESTOR (ROSUVASTATIN CALCIUM) [Concomitant]
  8. SPIRONDACTONE ALITIZIDE IVAX (ALTIZIDE, SPIRONOLACTONE) [Concomitant]
  9. LANZOR (LANSOPRAZOLE) [Concomitant]
  10. HUMALOG (INSULIN LISPRO) [Concomitant]
  11. AMITRIPTYLINE HYDROCHLORIDE [Concomitant]
  12. LEXOMIL (BROMAZEPAM) [Concomitant]
  13. SPASFON (PHLOROGLUCINOL, TRIMETHYPHLOROGLUCINOL) [Concomitant]
  14. MOTILIUM (DOMPERIDONE) [Concomitant]
  15. VASTAREL (TRIMETAZIDINE HYDROCHLORIDE) [Concomitant]
  16. KARDEGIC (ACETYLSALICYLATE LYSINE) [Concomitant]
  17. BISOCE TABLET [Concomitant]

REACTIONS (4)
  - Pyelonephritis acute [None]
  - Haematoma [None]
  - Haemoglobin decreased [None]
  - Heparin-induced thrombocytopenia [None]
